APPROVED DRUG PRODUCT: MINOCYCLINE HYDROCHLORIDE
Active Ingredient: MINOCYCLINE HYDROCHLORIDE
Strength: EQ 135MG BASE
Dosage Form/Route: TABLET, EXTENDED RELEASE;ORAL
Application: A204394 | Product #007
Applicant: SUN PHARMACEUTICAL INDUSTRIES LTD
Approved: Dec 30, 2015 | RLD: No | RS: No | Type: DISCN